FAERS Safety Report 4916276-8 (Version None)
Quarter: 2006Q1

REPORT INFORMATION
  Report Type: 
  Country: None (occurrence: None)
  Receive Date: 20060217
  Receipt Date: 20050504
  Transmission Date: 20060701
  Serious: Yes (Hospitalization)
  Sender: FDA-Public Use
  Company Number: US-MERCK-0505USA00578

PATIENT
  Age: 49 Year
  Sex: Female
  Weight: 58 kg

DRUGS (2)
  1. VIOXX [Suspect]
     Indication: BACK PAIN
     Route: 048
     Dates: start: 20020901, end: 20040901
  2. VIOXX [Suspect]
     Route: 048
     Dates: start: 20020901, end: 20040901

REACTIONS (3)
  - CHEST PAIN [None]
  - HEADACHE [None]
  - MYOCARDIAL INFARCTION [None]
